FAERS Safety Report 9563957 (Version 2)
Quarter: 2013Q4

REPORT INFORMATION
  Report Type: Report from Study
  Country: DE (occurrence: DE)
  Receive Date: 20130928
  Receipt Date: 20131029
  Transmission Date: 20140711
  Serious: Yes (Death, Hospitalization)
  Sender: FDA-Public Use
  Company Number: DE-ROCHE-1280897

PATIENT
  Age: 45 Year
  Sex: Male
  Weight: 74 kg

DRUGS (4)
  1. PEG-INTERFERON ALFA 2A [Suspect]
     Indication: CHRONIC HEPATITIS C
     Route: 058
     Dates: start: 20130507, end: 20130923
  2. RIBAVIRIN [Suspect]
     Indication: CHRONIC HEPATITIS C
     Route: 048
     Dates: start: 20130507, end: 20130923
  3. SPIRONOLACTON [Suspect]
     Indication: PRODUCT USED FOR UNKNOWN INDICATION
     Route: 065
  4. BOCEPREVIR [Suspect]
     Indication: CHRONIC HEPATITIS C
     Route: 048
     Dates: start: 20130604, end: 20130923

REACTIONS (4)
  - Hepatic cirrhosis [Fatal]
  - Confusional state [Not Recovered/Not Resolved]
  - Apathy [Not Recovered/Not Resolved]
  - General physical health deterioration [Not Recovered/Not Resolved]
